FAERS Safety Report 9097347 (Version 1)
Quarter: 2013Q1

REPORT INFORMATION
  Report Type: Spontaneous
  Country: CA (occurrence: CA)
  Receive Date: 20130212
  Receipt Date: 20130212
  Transmission Date: 20140127
  Serious: Yes (Other)
  Sender: FDA-Public Use
  Company Number: CA-PFIZER INC-2013051261

PATIENT
  Age: 40 Year
  Sex: Male

DRUGS (1)
  1. CELEBREX [Suspect]
     Dosage: 400 MG, UNK

REACTIONS (1)
  - Haemorrhage [Unknown]
